FAERS Safety Report 6992897-6 (Version None)
Quarter: 2010Q3

REPORT INFORMATION
  Report Type: 
  Country: None (occurrence: None)
  Receive Date: 20100917
  Receipt Date: 20100909
  Transmission Date: 20110219
  Serious: Yes (Death)
  Sender: FDA-Public Use
  Company Number: GXKR2010CI09438

PATIENT
  Age: 53 Year
  Sex: Male

DRUGS (5)
  1. RIFAMPICIN (NGX) [Suspect]
     Indication: DISSEMINATED TUBERCULOSIS
     Dosage: UNK
     Route: 065
     Dates: start: 20060520
  2. ISONIAZID [Suspect]
     Indication: DISSEMINATED TUBERCULOSIS
     Dosage: UNK
     Route: 065
     Dates: start: 20060520
  3. PYRAZINAMIDE [Suspect]
     Indication: DISSEMINATED TUBERCULOSIS
     Dosage: UNK
     Route: 065
     Dates: start: 20060520
  4. ETHAMBUTOL (NGX) [Suspect]
     Indication: DISSEMINATED TUBERCULOSIS
     Dosage: UNK
     Route: 065
     Dates: start: 20060520
  5. COTRIM [Concomitant]

REACTIONS (6)
  - ASTHENIA [None]
  - CIRCULATORY COLLAPSE [None]
  - GENERAL PHYSICAL HEALTH DETERIORATION [None]
  - ORAL CANDIDIASIS [None]
  - SKIN LESION [None]
  - TOXIC EPIDERMAL NECROLYSIS [None]
